FAERS Safety Report 5822123-2 (Version None)
Quarter: 2008Q3

REPORT INFORMATION
  Report Type: 
  Country: None (occurrence: None)
  Receive Date: 20080725
  Receipt Date: 20080717
  Transmission Date: 20090109
  Serious: Yes (Other)
  Sender: FDA-Public Use
  Company Number: SE-JNJFOC-20080704467

PATIENT
  Age: 49 Year
  Sex: Female

DRUGS (2)
  1. RISPERDAL [Suspect]
     Route: 048
  2. RISPERDAL [Suspect]
     Indication: DRUG USE FOR UNKNOWN INDICATION
     Dosage: THE DOSE HAS VARIED BETWEEN ? -2 MG, ONE TO TWO TIMES DAILY
     Route: 048

REACTIONS (1)
  - DEEP VEIN THROMBOSIS [None]
